FAERS Safety Report 10634980 (Version 3)
Quarter: 2015Q1

REPORT INFORMATION
  Report Type: Report from Study
  Country: DE (occurrence: DE)
  Receive Date: 20141205
  Receipt Date: 20150312
  Transmission Date: 20150720
  Serious: Yes (Death, Hospitalization)
  Sender: FDA-Public Use
  Company Number: DE-PFIZER INC-2014328450

PATIENT
  Age: 40 Year
  Sex: Female
  Weight: 53 kg

DRUGS (8)
  1. PANTOZOL [Concomitant]
     Active Substance: PANTOPRAZOLE SODIUM
     Indication: ABDOMINAL PAIN
     Dosage: 40 MG, 2X/DAY
     Route: 048
     Dates: start: 20141107
  2. PALLADON [Concomitant]
     Active Substance: HYDROMORPHONE
     Indication: BACK PAIN
     Dosage: 4 MG, 2X/DAY
     Route: 048
     Dates: start: 20141107
  3. IDEOS [Concomitant]
     Active Substance: CALCIUM CARBONATE\CHOLECALCIFEROL
     Indication: BACK PAIN
     Dosage: 500 MG, 1X/DAY
     Route: 048
     Dates: start: 20140826
  4. CRIZOTINIB [Suspect]
     Active Substance: CRIZOTINIB
     Indication: CLEAR CELL SARCOMA OF SOFT TISSUE
     Dosage: 250 MG, 2X/DAY
     Route: 048
     Dates: start: 20141103
  5. NOVALGIN [Concomitant]
     Active Substance: METAMIZOLE SODIUM
     Indication: BACK PAIN
     Route: 048
     Dates: start: 20140902
  6. ONDANSETRON [Concomitant]
     Active Substance: ONDANSETRON
     Indication: NAUSEA
     Dosage: 4 MG, AS NEEDED
     Route: 048
     Dates: start: 20141110
  7. IBUPROFEN. [Concomitant]
     Active Substance: IBUPROFEN
     Indication: BACK PAIN
     Dosage: 600 MG, AS NEEDED
     Route: 048
     Dates: start: 20140826
  8. LACTULOSE. [Concomitant]
     Active Substance: LACTULOSE
     Indication: CONSTIPATION
     Dosage: 10 ML, AS NEEDED
     Route: 048
     Dates: start: 20141023

REACTIONS (3)
  - Reactive gastropathy [Recovered/Resolved]
  - Clear cell sarcoma of soft tissue [Fatal]
  - Disease progression [Fatal]

NARRATIVE: CASE EVENT DATE: 20141119
